FAERS Safety Report 9684856 (Version 1)
Quarter: 2013Q4

REPORT INFORMATION
  Report Type: Spontaneous
  Country: US (occurrence: US)
  Receive Date: 20131112
  Receipt Date: 20131112
  Transmission Date: 20140711
  Serious: No
  Sender: FDA-Public Use
  Company Number: US-009507513-1311USA001368

PATIENT
  Sex: Female

DRUGS (2)
  1. EMEND [Suspect]
     Indication: PROPHYLAXIS OF NAUSEA AND VOMITING
     Dosage: 150MG FIRST INFUSION
     Route: 042
     Dates: start: 20131024
  2. ZOFRAN [Concomitant]

REACTIONS (2)
  - Infusion site induration [Recovered/Resolved]
  - Infusion site pain [Recovered/Resolved]
